FAERS Safety Report 5150626-5 (Version None)
Quarter: 2006Q4

REPORT INFORMATION
  Report Type: 
  Country: None (occurrence: None)
  Receive Date: 20061110
  Receipt Date: 20061110
  Transmission Date: 20070319
  Serious: Yes (Other)
  Sender: FDA-Public Use
  Company Number: None

PATIENT
  Sex: Female
  Weight: 60.3284 kg

DRUGS (1)
  1. ACETAMINOPHEN   EXTRA STRENGTH   EQUATE/PACKAGED BY PERRIGO [Suspect]
     Indication: DYSMENORRHOEA
     Dosage: 500 MG    2CAPLETS/6HOURS  PO
     Route: 048
     Dates: start: 20060601, end: 20061031

REACTIONS (3)
  - ASTHENIA [None]
  - DIARRHOEA [None]
  - VOMITING [None]
